FAERS Safety Report 8446128-0 (Version None)
Quarter: 2012Q2

REPORT INFORMATION
  Report Type: 
  Country: None (occurrence: None)
  Receive Date: 20120323
  Receipt Date: 20111222
  Transmission Date: 20120825
  Serious: Yes (Other)
  Sender: FDA-Public Use
  Company Number: 163-21880-11090256

PATIENT
  Age: 62 Year
  Sex: Female

DRUGS (3)
  1. REVLIMID [Suspect]
     Indication: MULTIPLE MYELOMA
     Dosage: 25;10;15 MG, DAILY FOR 21 DAYS, 1 IN 1 D, PO
     Route: 048
     Dates: start: 20111001
  2. REVLIMID [Suspect]
     Indication: MULTIPLE MYELOMA
     Dosage: 25;10;15 MG, DAILY FOR 21 DAYS, 1 IN 1 D, PO
     Route: 048
     Dates: start: 20110628, end: 20110822
  3. REVLIMID [Suspect]
     Indication: MULTIPLE MYELOMA
     Dosage: 25;10;15 MG, DAILY FOR 21 DAYS, 1 IN 1 D, PO
     Route: 048
     Dates: start: 20111201

REACTIONS (2)
  - PANCYTOPENIA [None]
  - BLOOD COUNT ABNORMAL [None]
